FAERS Safety Report 10874409 (Version 3)
Quarter: 2015Q3

REPORT INFORMATION
  Report Type: Spontaneous
  Country: US (occurrence: US)
  Receive Date: 20150227
  Receipt Date: 20150701
  Transmission Date: 20151125
  Serious: Yes (Hospitalization, Other)
  Sender: FDA-Public Use
  Company Number: US-JNJFOC-20150216263

PATIENT
  Age: 58 Year
  Sex: Female

DRUGS (3)
  1. XARELTO [Suspect]
     Active Substance: RIVAROXABAN
     Indication: THROMBOSIS PROPHYLAXIS
     Route: 048
     Dates: end: 20140603
  2. XARELTO [Suspect]
     Active Substance: RIVAROXABAN
     Indication: THROMBOSIS PROPHYLAXIS
     Dosage: 15 MGS TWICE A DAY FOR 21 DAYS
     Route: 048
     Dates: start: 201403
  3. XARELTO [Suspect]
     Active Substance: RIVAROXABAN
     Indication: THROMBOSIS PROPHYLAXIS
     Route: 048
     Dates: start: 20140610, end: 20140612

REACTIONS (8)
  - Gastrointestinal haemorrhage [Recovered/Resolved]
  - Dehydration [Unknown]
  - Shock [Unknown]
  - Normochromic normocytic anaemia [Unknown]
  - Renal impairment [Unknown]
  - Hypotension [Unknown]
  - Hypovolaemia [Unknown]
  - Tachycardia [Unknown]

NARRATIVE: CASE EVENT DATE: 201404
